FAERS Safety Report 5159247-1 (Version None)
Quarter: 2006Q4

REPORT INFORMATION
  Report Type: 
  Country: None (occurrence: None)
  Receive Date: 20061120
  Receipt Date: 20061103
  Transmission Date: 20070319
  Serious: Yes (Death)
  Sender: FDA-Public Use
  Company Number: 232434

PATIENT
  Age: 72 Year
  Sex: Female
  Weight: 88.5 kg

DRUGS (9)
  1. BEVACIZUMAB OR PLACEBO (BEVACIZUMAB) PWDR + SOLVENT, INFUSION SOLN, 10 [Suspect]
     Indication: BREAST CANCER
     Dosage: 7.5 MG/KG, Q3W, INTRAVENOUS
     Route: 042
     Dates: start: 20060908
  2. DOCETAXEL(DOCETAXEL) [Suspect]
     Indication: BREAST CANCER
     Dosage: 190 MG, Q3W, INTRAVENOUS
     Route: 042
     Dates: start: 20060908
  3. TYLENOL (CAPLET) [Concomitant]
  4. METOPROLOL TARTRATE [Concomitant]
  5. ALLOPURINOL [Concomitant]
  6. DECADRON [Concomitant]
  7. METFORMIN HCL [Concomitant]
  8. ARANESP [Concomitant]
  9. PAMIDRONATE DISODIUM [Concomitant]

REACTIONS (8)
  - ACIDOSIS [None]
  - ARRHYTHMIA [None]
  - DIARRHOEA [None]
  - HAEMOGLOBIN DECREASED [None]
  - HYPOTENSION [None]
  - INTESTINAL ISCHAEMIA [None]
  - PO2 DECREASED [None]
  - RECTAL HAEMORRHAGE [None]
